FAERS Safety Report 25540861 (Version 1)
Quarter: 2025Q3

REPORT INFORMATION
  Report Type: Spontaneous
  Country: CA (occurrence: CA)
  Receive Date: 20250710
  Receipt Date: 20250710
  Transmission Date: 20251020
  Serious: Yes (Death, Hospitalization)
  Sender: MERCK SHARP & DOHME LLC
  Company Number: CA-009507513-2307242

PATIENT
  Age: 71 Year
  Sex: Female

DRUGS (1)
  1. KEYTRUDA [Suspect]
     Active Substance: PEMBROLIZUMAB
     Indication: Breast cancer stage III
     Dosage: 1 EVERY 3 WEEKS
     Route: 065

REACTIONS (6)
  - Candida infection [Fatal]
  - Clostridium difficile infection [Fatal]
  - Enterococcal infection [Fatal]
  - Immunosuppression [Fatal]
  - Pneumonitis [Fatal]
  - Respiratory failure [Fatal]
